FAERS Safety Report 5666899-6 (Version None)
Quarter: 2008Q1

REPORT INFORMATION
  Report Type: 
  Country: None (occurrence: None)
  Receive Date: 20080315
  Receipt Date: 20080101
  Transmission Date: 20080703
  Serious: No
  Sender: FDA-Public Use
  Company Number: US-ABBOTT-08P-163-0432369-00

PATIENT
  Sex: Female
  Weight: 83.99 kg

DRUGS (13)
  1. HUMIRA [Suspect]
     Indication: RHEUMATOID ARTHRITIS
     Route: 058
     Dates: start: 20071001, end: 20071101
  2. HUMIRA [Suspect]
     Route: 058
     Dates: start: 20071101
  3. INEGY [Concomitant]
     Indication: BLOOD CHOLESTEROL INCREASED
  4. TRAZODONE HCL [Concomitant]
     Indication: INSOMNIA
  5. VALSARTAN [Concomitant]
     Indication: HYPERTENSION
  6. VALSARTAN [Concomitant]
     Indication: RENAL IMPAIRMENT
  7. AMLODIPINE [Concomitant]
     Indication: HYPERTENSION
  8. AMLODIPINE [Concomitant]
     Indication: RENAL IMPAIRMENT
  9. METOPROLOL SUCCINATE [Concomitant]
     Indication: HYPERTENSION
  10. METOPROLOL SUCCINATE [Concomitant]
     Indication: RENAL IMPAIRMENT
  11. OMEPRAZOLE [Concomitant]
     Indication: GASTROOESOPHAGEAL REFLUX DISEASE
  12. DULOXETINE HYDROCHLORIDE [Concomitant]
     Indication: DRUG USE FOR UNKNOWN INDICATION
  13. NAPROXEN SODIUM W/PSEUDOEPHEDRINE HCL [Concomitant]
     Indication: ARTHRALGIA

REACTIONS (1)
  - RASH PAPULAR [None]
